FAERS Safety Report 5286994-3 (Version None)
Quarter: 2007Q1

REPORT INFORMATION
  Report Type: 
  Country: None (occurrence: None)
  Receive Date: 20070329
  Receipt Date: 20070319
  Transmission Date: 20070707
  Serious: Yes (Other)
  Sender: FDA-Public Use
  Company Number: 2007SP003394

PATIENT
  Age: 38 Year
  Sex: Female
  Weight: 116 kg

DRUGS (3)
  1. VIRAFERONPEG [Suspect]
     Indication: HEPATITIS C
     Dosage: 150 MCG;QW;SC
     Route: 058
     Dates: start: 20060908, end: 20070112
  2. REBETOL [Suspect]
     Indication: HEPATITIS C
     Dosage: 1200 MG;QD;PO
     Route: 048
     Dates: start: 20060908, end: 20070112
  3. DOLIPRANE [Concomitant]

REACTIONS (1)
  - AUTOIMMUNE HEPATITIS [None]
